FAERS Safety Report 21285047 (Version 14)
Quarter: 2024Q1

REPORT INFORMATION
  Report Type: Spontaneous
  Country: US (occurrence: US)
  Receive Date: 20220902
  Receipt Date: 20240227
  Transmission Date: 20240409
  Serious: Yes (Other)
  Sender: FDA-Public Use
  Company Number: US-UCBSA-2022051859

PATIENT
  Age: 0 Year
  Sex: Male
  Weight: 17.2 kg

DRUGS (9)
  1. FINTEPLA [Suspect]
     Active Substance: FENFLURAMINE
     Indication: Severe myoclonic epilepsy of infancy
     Dosage: 1.1 MILLIGRAM, 2X/DAY (BID), 2.2 MG BID X 1 WEEK, 3.3 MG BID X 1 WEEK (0.55MG/KG/DAY)
     Route: 048
     Dates: start: 20200922
  2. FINTEPLA [Suspect]
     Active Substance: FENFLURAMINE
     Dosage: 4.4 MILLIGRAM, 2X/DAY (BID), (0.7 MG/KG/DAY) BY PRIOR WEIGHT
     Route: 048
     Dates: start: 20201106
  3. FINTEPLA [Suspect]
     Active Substance: FENFLURAMINE
     Dosage: 4.4 MILLIGRAM, 2X/DAY (BID) (0.69 MG/KG/DAY)
     Route: 048
     Dates: start: 20210604
  4. FINTEPLA [Suspect]
     Active Substance: FENFLURAMINE
     Dosage: 4.6 MILLIGRAM, 2X/DAY (BID), (0.7MG/KG/DAY)
     Route: 048
     Dates: start: 20210917
  5. FINTEPLA [Suspect]
     Active Substance: FENFLURAMINE
     Dosage: 5 MILLIGRAM, 2X/DAY (BID) (0.7 MG/KG/DAY)
     Route: 048
     Dates: start: 20210531
  6. FINTEPLA [Suspect]
     Active Substance: FENFLURAMINE
     Dosage: 2.3 MILLILITER, 2X/DAY (BID)
     Route: 048
     Dates: end: 20221206
  7. LEVETIRACETAM [Suspect]
     Active Substance: LEVETIRACETAM
     Indication: Severe myoclonic epilepsy of infancy
     Dosage: 450 MILLIGRAM, 2X/DAY (BID)
     Route: 048
     Dates: start: 20190321
  8. LEVETIRACETAM [Suspect]
     Active Substance: LEVETIRACETAM
     Indication: Off label use
  9. CLOBAZAM [Concomitant]
     Active Substance: CLOBAZAM
     Indication: Severe myoclonic epilepsy of infancy
     Dosage: UNK

REACTIONS (5)
  - Pulmonary hypertension [Recovered/Resolved]
  - Tricuspid valve incompetence [Recovered/Resolved]
  - Pericardial effusion [Recovered/Resolved]
  - Aortic valve incompetence [Unknown]
  - Off label use [Unknown]

NARRATIVE: CASE EVENT DATE: 20190321
